FAERS Safety Report 9549714 (Version 2)
Quarter: 2013Q4

REPORT INFORMATION
  Report Type: Report from Study
  Country: US (occurrence: US)
  Receive Date: 20130924
  Receipt Date: 20131121
  Transmission Date: 20140711
  Serious: Yes (Hospitalization)
  Sender: FDA-Public Use
  Company Number: US-PURDUE-USA-2013-0106614

PATIENT
  Age: 58 Year
  Sex: Male

DRUGS (1)
  1. OXY CR TAB [Suspect]
     Indication: PAIN
     Dosage: 120 MG, DAILY
     Route: 048

REACTIONS (1)
  - Myocardial infarction [Recovered/Resolved]
